FAERS Safety Report 18599395 (Version 1)
Quarter: 2020Q4

REPORT INFORMATION
  Report Type: Spontaneous
  Country: SK (occurrence: SK)
  Receive Date: 20201210
  Receipt Date: 20201210
  Transmission Date: 20210114
  Serious: Yes (Death, Hospitalization, Other)
  Sender: FDA-Public Use
  Company Number: SK-ACCORD-210503

PATIENT
  Age: 61 Year
  Sex: Female

DRUGS (5)
  1. TIAPRIDE [Suspect]
     Active Substance: TIAPRIDE
     Indication: SCHIZOAFFECTIVE DISORDER DEPRESSIVE TYPE
  2. ARIPIPRAZOLE. [Suspect]
     Active Substance: ARIPIPRAZOLE
     Indication: SCHIZOAFFECTIVE DISORDER DEPRESSIVE TYPE
  3. ESCITALOPRAM [Suspect]
     Active Substance: ESCITALOPRAM OXALATE
     Indication: SCHIZOAFFECTIVE DISORDER DEPRESSIVE TYPE
  4. QUETIAPINE. [Suspect]
     Active Substance: QUETIAPINE
     Indication: SCHIZOAFFECTIVE DISORDER DEPRESSIVE TYPE
  5. DIAZEPAM. [Suspect]
     Active Substance: DIAZEPAM
     Indication: SCHIZOAFFECTIVE DISORDER DEPRESSIVE TYPE

REACTIONS (2)
  - Peritonitis [Fatal]
  - Constipation [Fatal]
